FAERS Safety Report 7262846-4 (Version None)
Quarter: 2011Q1

REPORT INFORMATION
  Report Type: 
  Country: None (occurrence: None)
  Receive Date: 20110130
  Receipt Date: 20101020
  Transmission Date: 20110831
  Serious: Yes (Hospitalization)
  Sender: FDA-Public Use
  Company Number: US-ABBOTT-10P-163-0668052-00

PATIENT
  Sex: Female
  Weight: 95.34 kg

DRUGS (6)
  1. HUMIRA [Suspect]
     Indication: RHEUMATOID ARTHRITIS
     Dates: start: 20040101
  2. FOLIC ACID [Concomitant]
     Indication: RASH
  3. OMEPRAZOLE [Concomitant]
     Indication: DYSPEPSIA
  4. PREMARIN [Concomitant]
     Indication: HORMONE REPLACEMENT THERAPY
  5. CELEBREX [Concomitant]
     Indication: RHEUMATOID ARTHRITIS
  6. EFFEXOR [Concomitant]
     Indication: DEPRESSION

REACTIONS (5)
  - ARTHRITIS BACTERIAL [None]
  - JOINT STIFFNESS [None]
  - RHEUMATOID ARTHRITIS [None]
  - PAIN IN EXTREMITY [None]
  - FATIGUE [None]
